FAERS Safety Report 7156854-1 (Version None)
Quarter: 2010Q4

REPORT INFORMATION
  Report Type: 
  Country: None (occurrence: None)
  Receive Date: 20101214
  Receipt Date: 20101203
  Transmission Date: 20110411
  Serious: Yes (Other)
  Sender: FDA-Public Use
  Company Number: FR-JNJFOC-20101004253

PATIENT
  Sex: Female

DRUGS (8)
  1. IXPRIM [Suspect]
     Indication: ILL-DEFINED DISORDER
     Route: 048
  2. REMICADE [Suspect]
     Indication: ANKYLOSING SPONDYLITIS
     Route: 042
  3. METHOTREXATE [Suspect]
     Indication: ILL-DEFINED DISORDER
     Route: 048
  4. DEROXAT [Suspect]
     Indication: ILL-DEFINED DISORDER
     Route: 048
  5. APRANAX [Suspect]
     Indication: ILL-DEFINED DISORDER
     Route: 048
  6. ESOMEPRAZOLE [Suspect]
     Indication: ILL-DEFINED DISORDER
     Route: 048
  7. SPECIAFOLDINE [Concomitant]
  8. ALPRAZOLAM [Concomitant]

REACTIONS (5)
  - APHASIA [None]
  - CENTRAL NERVOUS SYSTEM LESION [None]
  - DIZZINESS [None]
  - HYPOAESTHESIA [None]
  - NEUROPATHY PERIPHERAL [None]
